FAERS Safety Report 18570568 (Version 2)
Quarter: 2020Q4

REPORT INFORMATION
  Report Type: Report from Study
  Country: None (occurrence: US)
  Receive Date: 20201202
  Receipt Date: 20201204
  Transmission Date: 20210114
  Serious: Yes (Hospitalization)
  Sender: FDA-Public Use
  Company Number: US-ABBVIE-20K-163-3647260-00

PATIENT
  Sex: Male

DRUGS (3)
  1. IMBRUVICA [Suspect]
     Active Substance: IBRUTINIB
     Indication: CHRONIC LYMPHOCYTIC LEUKAEMIA
     Route: 048
     Dates: start: 20170118
  2. IMBRUVICA [Suspect]
     Active Substance: IBRUTINIB
     Route: 048
  3. IMBRUVICA [Suspect]
     Active Substance: IBRUTINIB
     Route: 048
     Dates: start: 20161213

REACTIONS (14)
  - Pneumonia [Unknown]
  - Blood triglycerides increased [Unknown]
  - Cough [Not Recovered/Not Resolved]
  - Pulmonary congestion [Unknown]
  - Fatigue [Not Recovered/Not Resolved]
  - Asthenia [Not Recovered/Not Resolved]
  - Cholelithiasis [Unknown]
  - Chest pain [Unknown]
  - Spinal operation [Unknown]
  - Pyrexia [Unknown]
  - High density lipoprotein decreased [Unknown]
  - Bile duct stone [Unknown]
  - Hepatic enzyme increased [Recovered/Resolved]
  - Insomnia [Not Recovered/Not Resolved]

NARRATIVE: CASE EVENT DATE: 2018
